FAERS Safety Report 19183135 (Version 2)
Quarter: 2021Q2

REPORT INFORMATION
  Report Type: Spontaneous
  Country: JP (occurrence: JP)
  Receive Date: 20210426
  Receipt Date: 20210527
  Transmission Date: 20210717
  Serious: Yes (Other)
  Sender: FDA-Public Use
  Company Number: JP-BRISTOL-MYERS SQUIBB COMPANY-BMS-2021-036645

PATIENT
  Age: 5 Decade
  Sex: Female

DRUGS (1)
  1. KENACORT?A [Suspect]
     Active Substance: TRIAMCINOLONE ACETONIDE
     Indication: PRODUCT USED FOR UNKNOWN INDICATION
     Dosage: UNAVAILABLE
     Route: 030
     Dates: start: 2001

REACTIONS (20)
  - Blood test abnormal [Unknown]
  - Injection site pain [Unknown]
  - Hypopnoea [Unknown]
  - Adrenocortical insufficiency acute [Unknown]
  - Thyroid function test abnormal [Unknown]
  - Balance disorder [Unknown]
  - Pain [Unknown]
  - Thirst [Unknown]
  - Hypoaesthesia [Unknown]
  - Autonomic nervous system imbalance [Unknown]
  - Urinary retention [Unknown]
  - Fall [Unknown]
  - Tendonitis [Unknown]
  - Diarrhoea [Unknown]
  - Hypothyroidism [Unknown]
  - Malaise [Unknown]
  - Heart rate increased [Unknown]
  - Seizure [Unknown]
  - Eye discharge [Unknown]
  - Stress [Unknown]
